FAERS Safety Report 14204126 (Version 2)
Quarter: 2017Q4

REPORT INFORMATION
  Report Type: Report from Study
  Country: IT (occurrence: IT)
  Receive Date: 20171120
  Receipt Date: 20171128
  Transmission Date: 20180321
  Serious: Yes (Death)
  Sender: FDA-Public Use
  Company Number: PHHY2017IT149359

PATIENT
  Age: 39 Year
  Sex: Male

DRUGS (2)
  1. COSENTYX [Suspect]
     Active Substance: SECUKINUMAB
     Dosage: 300 MG, QMO (EVERY 28 DAYS)
     Route: 065
  2. COSENTYX [Suspect]
     Active Substance: SECUKINUMAB
     Indication: PRODUCT USED FOR UNKNOWN INDICATION
     Dosage: UNK
     Route: 065
     Dates: start: 201702

REACTIONS (4)
  - Myocardial infarction [Fatal]
  - Sneezing [Recovered/Resolved]
  - Hypersensitivity [Recovered/Resolved]
  - Body temperature fluctuation [Recovered/Resolved]

NARRATIVE: CASE EVENT DATE: 201704
